FAERS Safety Report 10538750 (Version 1)
Quarter: 2014Q4

REPORT INFORMATION
  Report Type: Report from Study
  Country: US (occurrence: US)
  Receive Date: 20141023
  Receipt Date: 20141023
  Transmission Date: 20150529
  Serious: Yes (Hospitalization)
  Sender: FDA-Public Use
  Company Number: US-TAKEDA-2014MPI002731

PATIENT
  Age: 1 Year
  Sex: Male
  Weight: 11.88 kg

DRUGS (5)
  1. VELCADE [Suspect]
     Active Substance: BORTEZOMIB
     Indication: ACUTE MYELOID LEUKAEMIA
     Dosage: 1.3 MG/M2, ON DAYS 1, 4, AND 8
     Route: 040
     Dates: start: 20140910
  2. CYTARABINE. [Suspect]
     Active Substance: CYTARABINE
     Indication: ACUTE MYELOID LEUKAEMIA
     Dosage: 20-70 MG (AGE BASED DOSING) ON DAY 1
     Route: 037
  3. ETOPOSIDE. [Suspect]
     Active Substance: ETOPOSIDE
     Indication: ACUTE MYELOID LEUKAEMIA
     Dosage: 100 MG/M2/DOSE OR 3.3 MG/KG/DOSE OVER 60-120 MINUTES ON DAYS 1-5
     Route: 042
     Dates: start: 20140910
  4. CYTARABINE. [Suspect]
     Active Substance: CYTARABINE
     Dosage: 100 MG/M2/DOSE OR 3.3 MG/KG/DOSE OVER 15-30 MINUTES ON DAYS 1-10
     Route: 042
     Dates: start: 20140910
  5. DAUNORUBICIN HYDROCHLORIDE. [Suspect]
     Active Substance: DAUNORUBICIN HYDROCHLORIDE
     Indication: ACUTE MYELOID LEUKAEMIA
     Dosage: 50 MG/M2/DOSE OR 1.7 MG/KG/DOSE ON DAYS 1-5
     Route: 042
     Dates: start: 20140910

REACTIONS (1)
  - Cerebrospinal fluid leakage [Recovering/Resolving]

NARRATIVE: CASE EVENT DATE: 20141009
